FAERS Safety Report 17858935 (Version 1)
Quarter: 2020Q2

REPORT INFORMATION
  Report Type: Spontaneous
  Country: BR (occurrence: BR)
  Receive Date: 20200604
  Receipt Date: 20200604
  Transmission Date: 20200714
  Serious: Yes (Other)
  Sender: FDA-Public Use
  Company Number: BR-PFIZER INC-2020204764

PATIENT
  Age: 64 Year
  Sex: Female
  Weight: 63 kg

DRUGS (18)
  1. ZITROMAX [Suspect]
     Active Substance: AZITHROMYCIN
     Indication: COVID-19
     Dosage: 500 MG, 1X/DAY
     Route: 042
     Dates: start: 20200323, end: 20200330
  2. NOREPINEFRINA [NOREPINEPHRINE BITARTRATE] [Concomitant]
     Dosage: 16 MG, AS NEEDED
     Route: 042
     Dates: start: 20200323
  3. SIMVASTATIN. [Concomitant]
     Active Substance: SIMVASTATIN
     Indication: COVID-19
     Dosage: 10 MG, 1X/DAY
  4. QUINACRIS [Interacting]
     Active Substance: CHLOROQUINE PHOSPHATE
     Indication: COVID-19
     Dosage: 500 MG, 2X/DAY
     Route: 050
     Dates: start: 20200321, end: 20200324
  5. KALETRA [Interacting]
     Active Substance: LOPINAVIR\RITONAVIR
     Indication: COVID-19
     Dosage: 2 DF, 2X/DAY
     Route: 050
     Dates: start: 20200322, end: 20200402
  6. BROMOPRIDA [Concomitant]
     Dosage: 30 MG, 3X/DAY
     Route: 042
     Dates: start: 20200323
  7. VANCOMICINA [VANCOMYCIN HYDROCHLORIDE] [Concomitant]
     Active Substance: VANCOMYCIN HYDROCHLORIDE
     Dosage: 1 G, 2X/DAY
     Route: 042
     Dates: start: 20200323, end: 20200401
  8. DORMIRE [MIDAZOLAM HYDROCHLORIDE] [Concomitant]
     Dosage: 100 MG, AS NEEDED
     Route: 042
     Dates: start: 20200323, end: 20200331
  9. IONCLOR [Concomitant]
     Dosage: 20 ML, 3X/DAY
     Route: 050
     Dates: start: 20200323, end: 20200326
  10. NEXIUM [Concomitant]
     Active Substance: ESOMEPRAZOLE MAGNESIUM
     Dosage: 20 MG, 1X/DAY
     Route: 048
     Dates: start: 20200323
  11. CEFTRIAXONE. [Concomitant]
     Active Substance: CEFTRIAXONE
     Indication: COVID-19
     Dosage: 1 G, 2X/DAY
     Route: 042
  12. AZITHROMYCIN ANHYDROUS. [Interacting]
     Active Substance: AZITHROMYCIN ANHYDROUS
     Indication: COVID-19
     Dosage: 500 MG, 1X/DAY
     Route: 048
     Dates: start: 20200321, end: 20200323
  13. FENTANEST [FENTANYL CITRATE] [Concomitant]
     Dosage: 2500 MG, AS NEEDED
     Route: 042
     Dates: start: 20200323, end: 20200331
  14. HYDROXYCHLOROQUINE [Concomitant]
     Active Substance: HYDROXYCHLOROQUINE
     Indication: COVID-19
     Dosage: 400 MG, 2X/DAY
     Route: 050
  15. EUTHYROX [Concomitant]
     Active Substance: LEVOTHYROXINE SODIUM
     Dosage: 50 UG, 1X/DAY
     Route: 050
     Dates: start: 20200323, end: 20200401
  16. LASIX [Concomitant]
     Active Substance: FUROSEMIDE
     Dosage: 30 MG, 3X/DAY
     Route: 042
     Dates: start: 20200323
  17. MERONEM [Concomitant]
     Active Substance: MEROPENEM
     Dosage: 1 G, 3X/DAY
     Route: 042
     Dates: start: 20200323, end: 20200401
  18. MUVINLAX [Concomitant]
     Active Substance: ELECTROLYTES NOS\POLYETHYLENE GLYCOL 3350
     Dosage: 14 G, 2X/DAY
     Route: 048
     Dates: start: 20200323

REACTIONS (4)
  - Electrocardiogram QT prolonged [Recovered/Resolved]
  - Protein C increased [Unknown]
  - Protein C decreased [Unknown]
  - Drug interaction [Unknown]

NARRATIVE: CASE EVENT DATE: 202003
